FAERS Safety Report 24991746 (Version 1)
Quarter: 2025Q1

REPORT INFORMATION
  Report Type: Spontaneous
  Country: CA (occurrence: CA)
  Receive Date: 20250220
  Receipt Date: 20250220
  Transmission Date: 20250409
  Serious: Yes (Hospitalization)
  Sender: ROCHE
  Company Number: CA-002147023-NVSC2025CA024654

PATIENT
  Age: 43 Year
  Sex: Female

DRUGS (1)
  1. OMALIZUMAB [Suspect]
     Active Substance: OMALIZUMAB
     Indication: Chronic spontaneous urticaria
     Dosage: 300 MG, Q4W
     Route: 050

REACTIONS (5)
  - Localised infection [Unknown]
  - Pain [Unknown]
  - Pain in extremity [Unknown]
  - Tremor [Unknown]
  - Urticaria [Unknown]
